FAERS Safety Report 12758852 (Version 1)
Quarter: 2016Q3

REPORT INFORMATION
  Report Type: Spontaneous
  Country: US (occurrence: US)
  Receive Date: 20160919
  Receipt Date: 20160919
  Transmission Date: 20161109
  Serious: Yes (Other)
  Sender: FDA-Public Use
  Company Number: US-SAGENTPRD-2016-US-000027

PATIENT
  Age: 23 Year
  Sex: Male
  Weight: 106.8 kg

DRUGS (10)
  1. KETAMINE [Concomitant]
     Active Substance: KETAMINE
  2. AZITHROMYCIN ANHYDROUS. [Concomitant]
     Active Substance: AZITHROMYCIN ANHYDROUS
  3. CEFTRIAXONE. [Concomitant]
     Active Substance: CEFTRIAXONE
  4. ATRACURIUM BESYLATE INJECTION, USP [Suspect]
     Active Substance: ATRACURIUM BESYLATE
     Dosage: TITRATED
     Route: 042
     Dates: start: 20160901, end: 20160901
  5. ALBUTEROL. [Concomitant]
     Active Substance: ALBUTEROL
  6. MIDAZOLAM [Concomitant]
     Active Substance: MIDAZOLAM\MIDAZOLAM HYDROCHLORIDE
  7. THEOPHYLLINE [Concomitant]
     Active Substance: THEOPHYLLINE ANHYDROUS
  8. METHYLPREDNISOLONE. [Concomitant]
     Active Substance: METHYLPREDNISOLONE
  9. FENTANYL. [Concomitant]
     Active Substance: FENTANYL
  10. CHLORHEXIDINE [Concomitant]
     Active Substance: CHLORHEXIDINE

REACTIONS (1)
  - Drug ineffective [Unknown]

NARRATIVE: CASE EVENT DATE: 20160901
